FAERS Safety Report 22621429 (Version 1)
Quarter: 2023Q2

REPORT INFORMATION
  Report Type: Report from Study
  Country: CA (occurrence: CA)
  Receive Date: 20230620
  Receipt Date: 20230620
  Transmission Date: 20230721
  Serious: Yes (Hospitalization)
  Sender: FDA-Public Use
  Company Number: CA-AKCEA THERAPEUTICS, INC.-2021IS001671

PATIENT

DRUGS (9)
  1. TEGSEDI [Suspect]
     Active Substance: INOTERSEN SODIUM
     Indication: Hereditary neuropathic amyloidosis
     Dosage: 284 MG, QW
     Route: 058
     Dates: start: 20210830
  2. TEGSEDI [Suspect]
     Active Substance: INOTERSEN SODIUM
     Dosage: 284 MILLIGRAM, QW
     Route: 058
     Dates: start: 20210827
  3. APIXABAN [Concomitant]
     Active Substance: APIXABAN
     Indication: Coagulopathy
     Dosage: 5 MG, BID
     Route: 048
  4. VITAMIN D NOS [Concomitant]
     Active Substance: VITAMIN D NOS
     Indication: Product used for unknown indication
     Dosage: UNK
     Route: 065
  5. MEGESTROL ACETATE [Concomitant]
     Active Substance: MEGESTROL ACETATE
     Indication: Increased appetite
     Dosage: 160 MG, QD
     Route: 048
     Dates: start: 202111
  6. HUMAN RED BLOOD CELL [Concomitant]
     Active Substance: HUMAN RED BLOOD CELL
     Indication: Haemoglobin decreased
     Dosage: UNK
     Route: 042
     Dates: start: 20220425
  7. OXYGEN [Concomitant]
     Active Substance: OXYGEN
     Indication: Symptomatic treatment
     Route: 045
  8. LASIX [Concomitant]
     Active Substance: FUROSEMIDE
     Indication: Swelling
     Dosage: UNK
     Route: 042
  9. LASIX [Concomitant]
     Active Substance: FUROSEMIDE
     Dosage: UNK
     Route: 048

REACTIONS (52)
  - Asthenia [Not Recovered/Not Resolved]
  - Swelling [Recovering/Resolving]
  - Dyspnoea [Not Recovered/Not Resolved]
  - Gait disturbance [Recovering/Resolving]
  - Cough [Not Recovered/Not Resolved]
  - Tongue dry [Not Recovered/Not Resolved]
  - Mucosal dryness [Not Recovered/Not Resolved]
  - Weight decreased [Not Recovered/Not Resolved]
  - Pain [Not Recovered/Not Resolved]
  - Hepatic function abnormal [Not Recovered/Not Resolved]
  - Pallor [Recovered/Resolved]
  - Haemoglobin decreased [Not Recovered/Not Resolved]
  - Oxygen saturation decreased [Not Recovered/Not Resolved]
  - Gastrointestinal haemorrhage [Not Recovered/Not Resolved]
  - Anaemia [Recovering/Resolving]
  - Decreased appetite [Not Recovered/Not Resolved]
  - Cardiac amyloidosis [Unknown]
  - Cardiac failure [Not Recovered/Not Resolved]
  - Generalised oedema [Recovering/Resolving]
  - Loss of personal independence in daily activities [Not Recovered/Not Resolved]
  - Disease progression [Not Recovered/Not Resolved]
  - Fall [Not Recovered/Not Resolved]
  - Mobility decreased [Recovering/Resolving]
  - Drug ineffective [Unknown]
  - Epistaxis [Not Recovered/Not Resolved]
  - Skin discolouration [Not Recovered/Not Resolved]
  - Pain of skin [Not Recovered/Not Resolved]
  - Skin warm [Not Recovered/Not Resolved]
  - Skin swelling [Not Recovered/Not Resolved]
  - Venous occlusion [Recovering/Resolving]
  - Blood creatinine decreased [Unknown]
  - General physical health deterioration [Unknown]
  - Emotional disorder [Unknown]
  - Palliative care [Unknown]
  - Eyelid ptosis [Unknown]
  - Balance disorder [Not Recovered/Not Resolved]
  - Dehydration [Not Recovered/Not Resolved]
  - Somnolence [Not Recovered/Not Resolved]
  - Erythema [Not Recovered/Not Resolved]
  - Diarrhoea [Recovered/Resolved]
  - Fatigue [Recovering/Resolving]
  - Contusion [Not Recovered/Not Resolved]
  - Rash [Not Recovered/Not Resolved]
  - Peripheral swelling [Recovering/Resolving]
  - Blood urine present [Recovered/Resolved]
  - Chromaturia [Unknown]
  - Malaise [Not Recovered/Not Resolved]
  - Dizziness [Not Recovered/Not Resolved]
  - Nerve injury [Unknown]
  - Feeling abnormal [Unknown]
  - Gait inability [Recovering/Resolving]
  - Incontinence [Recovering/Resolving]

NARRATIVE: CASE EVENT DATE: 20210101
